FAERS Safety Report 20631867 (Version 1)
Quarter: 2022Q1

REPORT INFORMATION
  Report Type: Spontaneous
  Country: US (occurrence: None)
  Receive Date: 20220323
  Receipt Date: 20220323
  Transmission Date: 20220423
  Serious: No
  Sender: FDA-Public Use
  Company Number: None

PATIENT
  Age: 57 Year
  Sex: Female
  Weight: 102.06 kg

DRUGS (1)
  1. VUITY [Suspect]
     Active Substance: PILOCARPINE HYDROCHLORIDE
     Indication: Vision blurred
     Dosage: FREQUENCY : DAILY;?
     Route: 047
     Dates: start: 20220310, end: 20220312

REACTIONS (5)
  - Drug ineffective [None]
  - Ocular hyperaemia [None]
  - Lacrimation increased [None]
  - Product advertising issue [None]
  - Suspected product contamination [None]

NARRATIVE: CASE EVENT DATE: 20220312
